FAERS Safety Report 25101118 (Version 2)
Quarter: 2025Q2

REPORT INFORMATION
  Report Type: Report from Study
  Country: CA (occurrence: CA)
  Receive Date: 20250320
  Receipt Date: 20250612
  Transmission Date: 20250716
  Serious: Yes (Other)
  Sender: OTSUKA
  Company Number: CA-MMM-Otsuka-ACZGVSUD

PATIENT
  Age: 61 Year
  Sex: Female

DRUGS (2)
  1. TOLVAPTAN [Suspect]
     Active Substance: TOLVAPTAN
     Indication: Congenital cystic kidney disease
     Dosage: 45 MG, QD (IN THE MORNING)
     Route: 048
     Dates: start: 20250117
  2. TOLVAPTAN [Suspect]
     Active Substance: TOLVAPTAN
     Dosage: 15 MG, QD (8 H LATER)
     Route: 048
     Dates: start: 20250117

REACTIONS (11)
  - Eye haemorrhage [Unknown]
  - Respiratory tract infection [Not Recovered/Not Resolved]
  - Foreign body sensation in eyes [Not Recovered/Not Resolved]
  - Nasopharyngitis [Unknown]
  - Dry eye [Not Recovered/Not Resolved]
  - Cough [Unknown]
  - Blood pressure decreased [Not Recovered/Not Resolved]
  - Nausea [Unknown]
  - Dyspepsia [Not Recovered/Not Resolved]
  - Diarrhoea [Unknown]
  - Alanine aminotransferase increased [Not Recovered/Not Resolved]

NARRATIVE: CASE EVENT DATE: 20250117
